FAERS Safety Report 7315570-3 (Version None)
Quarter: 2011Q1

REPORT INFORMATION
  Report Type: 
  Country: None (occurrence: None)
  Receive Date: 20110225
  Receipt Date: 20110225
  Transmission Date: 20110831
  Serious: Yes (Death, Life-Threatening, Hospitalization)
  Sender: FDA-Public Use
  Company Number: DE-ELI_LILLY_AND_COMPANY-DE201007000567

PATIENT
  Sex: Male
  Weight: 52 kg

DRUGS (19)
  1. GEMCITABINE HYDROCHLORIDE [Suspect]
     Indication: NON-SMALL CELL LUNG CANCER
     Dosage: 2000 MG, 2 IN 3 WEEKS
     Route: 042
     Dates: start: 20100617
  2. CISPLATIN [Suspect]
     Indication: NON-SMALL CELL LUNG CANCER
     Dosage: 120 MG, 1 IN 3 WEEKS
     Route: 042
     Dates: start: 20100617
  3. METAMIZOLE [Concomitant]
     Indication: PAIN
     Route: 048
     Dates: start: 20100511
  4. AMPHOTERICIN B [Concomitant]
     Indication: STOMATITIS
     Dates: start: 20100511
  5. AREDIA [Concomitant]
     Indication: PSORIATIC ARTHROPATHY
     Dates: start: 20100618, end: 20100618
  6. MACROGOL [Concomitant]
     Indication: CONSTIPATION
     Dates: start: 20100620, end: 20100627
  7. LOPERAMIDE [Concomitant]
     Indication: DIARRHOEA
     Dates: start: 20100627, end: 20100628
  8. METAMIZOLE [Concomitant]
     Route: 042
     Dates: start: 20100622
  9. METHOTREXATE [Concomitant]
     Indication: PSORIATIC ARTHROPATHY
     Dates: start: 20100622
  10. PANTOPRAZOLE [Concomitant]
     Indication: PAIN
     Route: 042
     Dates: start: 20100629, end: 20100629
  11. VITAMIN A [Concomitant]
     Dates: start: 20100628, end: 20100629
  12. MORPHIN HCL [Concomitant]
     Indication: PAIN
     Dates: start: 20100618
  13. POVIDONE IODINE [Concomitant]
     Indication: ERYTHEMA MULTIFORME
     Dates: start: 20100626, end: 20100629
  14. STRUCTOKABIVEN /05981101/ [Concomitant]
     Indication: PARENTERAL NUTRITION
     Dates: start: 20100628, end: 20100629
  15. TRAMADOL [Concomitant]
     Indication: PAIN
     Dates: start: 20100616
  16. ATARAX [Concomitant]
     Indication: PRURITUS
     Dates: start: 19760101
  17. PSORCUTAN [Concomitant]
     Indication: PSORIATIC ARTHROPATHY
     Dates: start: 19760101
  18. DICLOFENAC [Concomitant]
     Indication: PAIN
     Dates: start: 19960101
  19. NALOXONE [Concomitant]
     Indication: PAIN
     Dates: start: 20100620, end: 20100620

REACTIONS (2)
  - GENERAL PHYSICAL HEALTH DETERIORATION [None]
  - NEUTROPENIC SEPSIS [None]
